FAERS Safety Report 8172999-1 (Version None)
Quarter: 2012Q1

REPORT INFORMATION
  Report Type: 
  Country: None (occurrence: None)
  Receive Date: 20120223
  Receipt Date: 20120217
  Transmission Date: 20120608
  Serious: Yes (Hospitalization)
  Sender: FDA-Public Use
  Company Number: 2011-000005

PATIENT
  Age: 81 Year
  Sex: Female
  Weight: 38.5 kg

DRUGS (3)
  1. ESTRACE [Suspect]
     Indication: ATROPHY
     Dosage: 1 G 2 TIMES PER WEEK, VAGINAL
     Dates: start: 20111114, end: 20111121
  2. ESTRACE [Suspect]
     Indication: PREOPERATIVE CARE
     Dosage: 1 G 2 TIMES PER WEEK, VAGINAL
     Dates: start: 20111114, end: 20111121
  3. DORZOLAMIDE HCL (DORZOLAMIDE HYDROCHLORIDE) [Concomitant]

REACTIONS (10)
  - ABDOMINAL DISTENSION [None]
  - CARDIAC FAILURE CONGESTIVE [None]
  - BRONCHITIS [None]
  - HEADACHE [None]
  - BLOOD PRESSURE INCREASED [None]
  - FLUID RETENTION [None]
  - CYSTOCELE [None]
  - URINE SODIUM DECREASED [None]
  - PALPITATIONS [None]
  - DIZZINESS [None]
